FAERS Safety Report 6090456-3 (Version None)
Quarter: 2009Q1

REPORT INFORMATION
  Report Type: 
  Country: None (occurrence: None)
  Receive Date: 20090224
  Receipt Date: 20081229
  Transmission Date: 20090719
  Serious: No
  Sender: FDA-Public Use
  Company Number: US-ABBOTT-09P-163-0495519-00

PATIENT
  Sex: Female
  Weight: 86.26 kg

DRUGS (3)
  1. SIMCOR [Suspect]
     Indication: BLOOD CHOLESTEROL
     Dosage: 500/20 MG DAILY
     Dates: start: 20080915
  2. COZAAR [Concomitant]
     Indication: BLOOD PRESSURE
  3. ASPIRIN [Concomitant]
     Indication: PROPHYLAXIS

REACTIONS (3)
  - ERYTHEMA [None]
  - GENITAL INFECTION FUNGAL [None]
  - SWELLING FACE [None]
